FAERS Safety Report 6099758-8 (Version None)
Quarter: 2009Q1

REPORT INFORMATION
  Report Type: 
  Country: None (occurrence: None)
  Receive Date: 20090303
  Receipt Date: 20090225
  Transmission Date: 20090719
  Serious: Yes (Other)
  Sender: FDA-Public Use
  Company Number: CA-ABBOTT-09P-028-0559378-00

PATIENT
  Sex: Male

DRUGS (1)
  1. SEVOFLURANE [Suspect]
     Indication: ORTHOPEDIC PROCEDURE
     Dosage: FOR APPROXIMATELY 30 MINUTES

REACTIONS (1)
  - HEPATITIS ACUTE [None]
